FAERS Safety Report 4954375-5 (Version None)
Quarter: 2006Q1

REPORT INFORMATION
  Report Type: 
  Country: None (occurrence: None)
  Receive Date: 20060322
  Receipt Date: 20060316
  Transmission Date: 20060701
  Serious: Yes (Other)
  Sender: FDA-Public Use
  Company Number: FRWYE479216MAR06

PATIENT
  Age: 44 Year
  Sex: Female

DRUGS (4)
  1. EFFEXOR [Suspect]
     Indication: DEPRESSION
     Dosage: 100 MG TOTAL DAILY ORAL
     Route: 048
     Dates: start: 20060101, end: 20060310
  2. LEVOTHYROXINE SODIUM [Concomitant]
  3. CETIRIZINE HCL [Concomitant]
  4. VARNOLINE (DESOGESTREL/ETHINYLESTRADIOL) [Concomitant]

REACTIONS (2)
  - CONDITION AGGRAVATED [None]
  - DEVELOPMENTAL GLAUCOMA [None]
